FAERS Safety Report 5678686-3 (Version None)
Quarter: 2008Q1

REPORT INFORMATION
  Report Type: 
  Country: None (occurrence: None)
  Receive Date: 20080320
  Receipt Date: 20080306
  Transmission Date: 20080703
  Serious: Yes (Other)
  Sender: FDA-Public Use
  Company Number: 2008AL001453

PATIENT
  Age: 74 Year
  Sex: Male

DRUGS (5)
  1. METFORMIN HYDROCHLORIDE [Suspect]
     Indication: TYPE 2 DIABETES MELLITUS
     Dosage: 500 MG; PO
     Route: 048
     Dates: start: 20080129, end: 20080213
  2. SIMVASTATIN [Concomitant]
  3. SILDENAFIL CITRATE [Concomitant]
  4. OMEPRAZOLE [Concomitant]
  5. LOPRAZOLAM [Concomitant]

REACTIONS (1)
  - EPISTAXIS [None]
